FAERS Safety Report 10528914 (Version 1)
Quarter: 2014Q4

REPORT INFORMATION
  Report Type: Spontaneous
  Country: US (occurrence: None)
  Receive Date: 20141016
  Receipt Date: 20141016
  Transmission Date: 20150528
  Serious: Yes (Life-Threatening, Hospitalization)
  Sender: FDA-Public Use
  Company Number: None

PATIENT
  Age: 71 Year
  Sex: Male
  Weight: 81 kg

DRUGS (1)
  1. PONATINIB [Suspect]
     Active Substance: PONATINIB
     Indication: ACUTE MYELOID LEUKAEMIA
     Route: 048
     Dates: start: 20130402, end: 20131021

REACTIONS (7)
  - Cardiogenic shock [None]
  - Thrombocytopenia [None]
  - Respiratory tract infection [None]
  - Haemoglobin decreased [None]
  - Abdominal pain [None]
  - Hepatic congestion [None]
  - Pulmonary congestion [None]

NARRATIVE: CASE EVENT DATE: 20131021
